FAERS Safety Report 12969967 (Version 1)
Quarter: 2016Q4

REPORT INFORMATION
  Report Type: Spontaneous
  Country: US (occurrence: US)
  Receive Date: 20161123
  Receipt Date: 20161123
  Transmission Date: 20170207
  Serious: Yes (Hospitalization)
  Sender: FDA-Public Use
  Company Number: US-JNJFOC-20150406030

PATIENT
  Age: 70 Year

DRUGS (1)
  1. IMBRUVICA [Suspect]
     Active Substance: IBRUTINIB
     Indication: CHRONIC LYMPHOCYTIC LEUKAEMIA
     Route: 048
     Dates: start: 20131125, end: 20140710

REACTIONS (3)
  - Inappropriate antidiuretic hormone secretion [Unknown]
  - Herpes zoster [Recovered/Resolved]
  - Metabolic encephalopathy [Unknown]

NARRATIVE: CASE EVENT DATE: 20140706
